FAERS Safety Report 10023172 (Version 1)
Quarter: 2014Q1

REPORT INFORMATION
  Report Type: Spontaneous
  Country: IT (occurrence: IT)
  Receive Date: 20140320
  Receipt Date: 20140320
  Transmission Date: 20141002
  Serious: Yes (Other)
  Sender: FDA-Public Use
  Company Number: IT-PFIZER INC-2014077235

PATIENT
  Age: 86 Year
  Sex: Male

DRUGS (9)
  1. MEDROL [Suspect]
     Dosage: 1 DF, DAILY
     Route: 048
     Dates: start: 20131223, end: 20131229
  2. BENTELAN [Suspect]
     Dosage: 1 DF, DAILY
     Route: 030
     Dates: start: 20131223
  3. CARDIOASPIRIN [Suspect]
     Indication: THROMBOSIS PROPHYLAXIS
     Dosage: 1 DF, DAILY
     Route: 048
     Dates: start: 20130101
  4. TRITTICO [Concomitant]
     Dosage: UNK
     Route: 048
  5. SERETIDE [Concomitant]
     Dosage: 3 DF, UNK
  6. HALCION [Concomitant]
     Dosage: UNK
     Route: 048
  7. KANRENOL [Concomitant]
     Dosage: UNK
     Route: 048
  8. DEPAKIN CHRONO [Concomitant]
     Dosage: UNK
     Route: 048
  9. CARDICOR [Concomitant]
     Dosage: UNK
     Route: 048

REACTIONS (1)
  - Rectal haemorrhage [Recovering/Resolving]
